FAERS Safety Report 15246347 (Version 1)
Quarter: 2018Q3

REPORT INFORMATION
  Report Type: Report from Study
  Country: FR (occurrence: FR)
  Receive Date: 20180806
  Receipt Date: 20180806
  Transmission Date: 20181010
  Serious: Yes (Other)
  Sender: FDA-Public Use
  Company Number: FR-PFIZER INC-2018310981

PATIENT
  Age: 65 Year
  Sex: Female
  Weight: 102 kg

DRUGS (2)
  1. LETROZOLE. [Suspect]
     Active Substance: LETROZOLE
     Indication: BREAST CANCER METASTATIC
     Dosage: 2.5 MG, CYCLIC
     Route: 065
     Dates: start: 20180206
  2. PALBOCICLIB [Suspect]
     Active Substance: PALBOCICLIB
     Indication: BREAST CANCER METASTATIC
     Dosage: 125 MG, CYCLIC
     Route: 065
     Dates: start: 20180206, end: 20180605

REACTIONS (6)
  - Lymphocyte count decreased [Unknown]
  - Monocyte count decreased [Unknown]
  - Neutrophil count decreased [Unknown]
  - Neutropenia [Recovered/Resolved]
  - White blood cell count decreased [Unknown]
  - Haematocrit decreased [Unknown]

NARRATIVE: CASE EVENT DATE: 20180611
